FAERS Safety Report 5405798-1 (Version None)
Quarter: 2007Q3

REPORT INFORMATION
  Report Type: 
  Country: None (occurrence: None)
  Receive Date: 20070806
  Receipt Date: 20070802
  Transmission Date: 20080115
  Serious: Yes (Other)
  Sender: FDA-Public Use
  Company Number: AU-BRISTOL-MYERS SQUIBB COMPANY-13865589

PATIENT
  Age: 51 Year
  Sex: Female
  Weight: 70 kg

DRUGS (3)
  1. AVAPRO [Suspect]
     Indication: ESSENTIAL HYPERTENSION
     Route: 048
     Dates: start: 20020211, end: 20050921
  2. VASOCARDOL [Concomitant]
     Indication: ESSENTIAL HYPERTENSION
  3. ANTENEX [Concomitant]
     Indication: ANXIETY DISORDER
     Dates: start: 20010715, end: 20051221

REACTIONS (7)
  - COUGH [None]
  - DRUG ERUPTION [None]
  - DYSPNOEA [None]
  - HYPOAESTHESIA [None]
  - LYMPHADENOPATHY [None]
  - SENSATION OF FOREIGN BODY [None]
  - TINNITUS [None]
